FAERS Safety Report 8519065-0 (Version None)
Quarter: 2012Q3

REPORT INFORMATION
  Report Type: 
  Country: None (occurrence: None)
  Receive Date: 20120709
  Receipt Date: 20120625
  Transmission Date: 20120928
  Serious: Yes (Hospitalization)
  Sender: FDA-Public Use
  Company Number: JPI-P-021302

PATIENT
  Age: 37 Year
  Sex: Female
  Weight: 114.76 kg

DRUGS (3)
  1. UNSPECIFIED MEDICATIONS [Concomitant]
  2. XYREM [Suspect]
     Indication: NARCOLEPSY
     Dosage: 6 GM (3 GM, 2 IN 1 D), ORAL; ORAL; 7.5 GM (3.75 G, 2 IN 1 D), ORAL
     Route: 048
     Dates: start: 20061016
  3. XYREM [Suspect]
     Indication: NARCOLEPSY
     Dosage: 6 GM (3 GM, 2 IN 1 D), ORAL; ORAL; 7.5 GM (3.75 G, 2 IN 1 D), ORAL
     Route: 048
     Dates: start: 20100223

REACTIONS (2)
  - EMERGENCY CARE [None]
  - GASTRIC BYPASS [None]
